FAERS Safety Report 6986812-9 (Version None)
Quarter: 2010Q3

REPORT INFORMATION
  Report Type: 
  Country: None (occurrence: None)
  Receive Date: 20100915
  Receipt Date: 20090731
  Transmission Date: 20110219
  Serious: No
  Sender: FDA-Public Use
  Company Number: US-WYE-H10425009

PATIENT
  Age: 30 Year
  Sex: Female

DRUGS (2)
  1. PRISTIQ [Suspect]
     Indication: DEPRESSION
     Route: 048
     Dates: start: 20090729
  2. NAPROXEN [Suspect]
     Indication: HEADACHE
     Dates: start: 20090729

REACTIONS (1)
  - ABDOMINAL PAIN UPPER [None]
